FAERS Safety Report 19993209 (Version 2)
Quarter: 2022Q1

REPORT INFORMATION
  Report Type: Report from Study
  Country: US (occurrence: US)
  Receive Date: 20211026
  Receipt Date: 20220228
  Transmission Date: 20220423
  Serious: Yes (Hospitalization)
  Sender: FDA-Public Use
  Company Number: US-BAUSCH-BL-2021-035336

PATIENT
  Age: 70 Year
  Sex: Female

DRUGS (2)
  1. XIFAXAN [Suspect]
     Active Substance: RIFAXIMIN
     Indication: Product used for unknown indication
     Dosage: 2 TABLETS DAILY
     Route: 065
  2. XIFAXAN [Suspect]
     Active Substance: RIFAXIMIN
     Dosage: 1 TABLET DAILY
     Route: 065

REACTIONS (4)
  - Hospitalisation [Unknown]
  - Therapy interrupted [Unknown]
  - Product supply issue [Unknown]
  - Intentional product use issue [Unknown]
